FAERS Safety Report 11872170 (Version 8)
Quarter: 2018Q2

REPORT INFORMATION
  Report Type: Spontaneous
  Country: IT (occurrence: IT)
  Receive Date: 20151228
  Receipt Date: 20180509
  Transmission Date: 20180711
  Serious: Yes (Death)
  Sender: FDA-Public Use
  Company Number: IT-PFIZER INC-2015464264

PATIENT
  Age: 38 Year
  Sex: Male
  Weight: 55 kg

DRUGS (4)
  1. ZOLPIDEM [Interacting]
     Active Substance: ZOLPIDEM\ZOLPIDEM TARTRATE
     Dosage: UNK
  2. DELORAZEPAM [Interacting]
     Active Substance: DELORAZEPAM
     Dosage: UNK
  3. TRIAZOLAM. [Interacting]
     Active Substance: TRIAZOLAM
     Dosage: UNK
  4. ALPRAZOLAM. [Suspect]
     Active Substance: ALPRAZOLAM
     Dosage: UNK

REACTIONS (3)
  - Alcohol interaction [Fatal]
  - Completed suicide [Fatal]
  - Toxicity to various agents [Fatal]
